FAERS Safety Report 23966968 (Version 2)
Quarter: 2024Q3

REPORT INFORMATION
  Report Type: Report from Study
  Country: US (occurrence: US)
  Receive Date: 20240612
  Receipt Date: 20240723
  Transmission Date: 20241017
  Serious: Yes (Hospitalization, Other)
  Sender: OTSUKA
  Company Number: US-OTSUKA-2024_016496

PATIENT
  Age: 50 Year
  Sex: Female

DRUGS (2)
  1. TOLVAPTAN [Suspect]
     Active Substance: TOLVAPTAN
     Indication: Product used for unknown indication
     Dosage: 45 MG, QD (UPON WAKING)
     Route: 048
     Dates: start: 20210701
  2. TOLVAPTAN [Suspect]
     Active Substance: TOLVAPTAN
     Dosage: 15 MG, QD (8 H LATER)
     Route: 048
     Dates: start: 20210701

REACTIONS (4)
  - Laparotomy [Unknown]
  - Pancreatectomy [Unknown]
  - Splenectomy [Unknown]
  - Intraductal papillary mucinous neoplasm [Unknown]

NARRATIVE: CASE EVENT DATE: 20240220
